FAERS Safety Report 5417173-4 (Version None)
Quarter: 2007Q3

REPORT INFORMATION
  Report Type: 
  Country: None (occurrence: None)
  Receive Date: 20070718
  Receipt Date: 20070515
  Transmission Date: 20080115
  Serious: Yes (Hospitalization, Other)
  Sender: FDA-Public Use
  Company Number: 2007040071

PATIENT
  Age: 77 Year
  Sex: Female

DRUGS (2)
  1. CELEBREX [Suspect]
     Indication: PAIN
     Dosage: (200 MG)
     Dates: start: 20040901, end: 20050501
  2. VIOXX [Suspect]

REACTIONS (1)
  - DEEP VEIN THROMBOSIS [None]
